FAERS Safety Report 23452400 (Version 3)
Quarter: 2024Q1

REPORT INFORMATION
  Report Type: Spontaneous
  Country: JP (occurrence: JP)
  Receive Date: 20240129
  Receipt Date: 20240221
  Transmission Date: 20240409
  Serious: Yes (Other)
  Sender: FDA-Public Use
  Company Number: JP-002147023-NVSJ2024JP001234

PATIENT

DRUGS (2)
  1. RUXOLITINIB [Suspect]
     Active Substance: RUXOLITINIB
     Indication: Myelofibrosis
     Dosage: UNK
     Route: 048
     Dates: start: 20140520
  2. RUXOLITINIB [Suspect]
     Active Substance: RUXOLITINIB
     Dosage: 5 MG, BID
     Route: 048
     Dates: start: 20200721

REACTIONS (6)
  - Gastritis [Unknown]
  - Nocturia [Unknown]
  - Second primary malignancy [Unknown]
  - Carcinoid tumour in the large intestine [Unknown]
  - Sinusitis [Unknown]
  - Uterine prolapse [Unknown]

NARRATIVE: CASE EVENT DATE: 20161001
